FAERS Safety Report 21824099 (Version 1)
Quarter: 2023Q1

REPORT INFORMATION
  Report Type: Spontaneous
  Country: US (occurrence: US)
  Receive Date: 20230105
  Receipt Date: 20230105
  Transmission Date: 20230417
  Serious: Yes (Other)
  Sender: FDA-Public Use
  Company Number: US-BAXTER-2022BAX031828

PATIENT
  Sex: Male
  Weight: 87.3 kg

DRUGS (21)
  1. CYCLOPHOSPHAMIDE [Suspect]
     Active Substance: CYCLOPHOSPHAMIDE
     Indication: Plasma cell myeloma
     Dosage: 916 MG, VTD-PACE REGIMEN
     Route: 042
  2. CYCLOPHOSPHAMIDE [Suspect]
     Active Substance: CYCLOPHOSPHAMIDE
     Indication: Plasma cell leukaemia
     Dosage: CHEMO INFUSION, , IV PIGGYBACK, EVERY 24 HOURS, 1 OF 1 CYCLE
     Route: 042
  3. DOXORUBICIN [Suspect]
     Active Substance: DOXORUBICIN
     Indication: Plasma cell myeloma
     Dosage: VTD-PACE REGIMEN
     Route: 065
  4. DOXORUBICIN [Suspect]
     Active Substance: DOXORUBICIN
     Indication: Plasma cell leukaemia
  5. MESNA [Suspect]
     Active Substance: MESNA
     Indication: Plasma cell myeloma
     Dosage: 2 CYCLES OF DARA PACMED
     Route: 065
  6. MESNA [Suspect]
     Active Substance: MESNA
     Indication: Plasma cell leukaemia
  7. DARATUMUMAB [Suspect]
     Active Substance: DARATUMUMAB
     Indication: Plasma cell myeloma
     Dosage: 16 MG/KG DAY 1
     Route: 065
  8. DARATUMUMAB [Suspect]
     Active Substance: DARATUMUMAB
     Indication: Plasma cell leukaemia
  9. VELCADE [Suspect]
     Active Substance: BORTEZOMIB
     Indication: Plasma cell myeloma
     Dosage: 1 MG/M2, VTD-PACE REGIMEN
     Route: 065
  10. VELCADE [Suspect]
     Active Substance: BORTEZOMIB
     Indication: Plasma cell leukaemia
  11. CISPLATIN [Suspect]
     Active Substance: CISPLATIN
     Indication: Plasma cell myeloma
     Dosage: 23 MG, VTD-PACE REGIMEN
     Route: 065
  12. CISPLATIN [Suspect]
     Active Substance: CISPLATIN
     Indication: Plasma cell leukaemia
  13. ETOPOSIDE [Suspect]
     Active Substance: ETOPOSIDE
     Indication: Plasma cell myeloma
     Dosage: 92 MG, VTD-PACE REGIMEN
     Route: 042
  14. ETOPOSIDE [Suspect]
     Active Substance: ETOPOSIDE
     Indication: Plasma cell leukaemia
     Dosage: CHEMO INFUSION, IV PIGGYBACK, EVERY 24 HOURS, 1 OF 1
     Route: 042
  15. ETOPOSIDE [Suspect]
     Active Substance: ETOPOSIDE
     Dosage: (VEPESID) CHEMO INFUSION (UNDILUTED-HIGH DOSE ONLY), 100 MG/M2
     Route: 042
  16. CYTARABINE [Suspect]
     Active Substance: CYTARABINE
     Indication: Plasma cell myeloma
     Dosage: CHEMO INFUSION, 750 MG/M2 = 1,500 MG, IV PIGGYBACK, EVERY 24 HOURS, 1 OF 1 CYCLE
     Route: 042
  17. CYTARABINE [Suspect]
     Active Substance: CYTARABINE
     Indication: Plasma cell leukaemia
  18. DEXAMETHASONE [Suspect]
     Active Substance: DEXAMETHASONE
     Indication: Plasma cell myeloma
     Dosage: VTD-PACE REGIMEN
     Route: 065
  19. DEXAMETHASONE [Suspect]
     Active Substance: DEXAMETHASONE
     Indication: Plasma cell leukaemia
  20. THALIDOMIDE [Suspect]
     Active Substance: THALIDOMIDE
     Indication: Plasma cell myeloma
     Dosage: 100 MG DAILY, VTD-PACE REGIMEN
     Route: 065
  21. THALIDOMIDE [Suspect]
     Active Substance: THALIDOMIDE
     Indication: Plasma cell leukaemia

REACTIONS (4)
  - Plasma cell myeloma [Unknown]
  - Plasma cell myeloma refractory [Unknown]
  - Gait disturbance [Unknown]
  - Therapy non-responder [Unknown]
